FAERS Safety Report 21009296 (Version 1)
Quarter: 2022Q2

REPORT INFORMATION
  Report Type: Spontaneous
  Country: SE (occurrence: SE)
  Receive Date: 20220627
  Receipt Date: 20220627
  Transmission Date: 20220720
  Serious: Yes (Other)
  Sender: FDA-Public Use
  Company Number: None

PATIENT
  Age: 69 Year
  Sex: Male

DRUGS (10)
  1. METHOTREXATE [Suspect]
     Active Substance: METHOTREXATE
     Indication: Rheumatoid arthritis
     Route: 065
     Dates: start: 20210301, end: 20210429
  2. BARICITINIB [Suspect]
     Active Substance: BARICITINIB
     Indication: Product used for unknown indication
     Route: 065
     Dates: start: 20210204, end: 20210429
  3. ETANERCEPT [Suspect]
     Active Substance: ETANERCEPT
     Indication: Product used for unknown indication
     Route: 065
     Dates: start: 20201203, end: 20210204
  4. UPADACITINIB [Suspect]
     Active Substance: UPADACITINIB
     Indication: Rheumatoid arthritis
     Route: 048
     Dates: start: 20201019, end: 20201203
  5. TOFACITINIB [Suspect]
     Active Substance: TOFACITINIB
     Indication: Product used for unknown indication
     Route: 065
     Dates: start: 20210712
  6. METFORMIN [Concomitant]
     Active Substance: METFORMIN HYDROCHLORIDE
     Indication: Product used for unknown indication
  7. LEVOTHYROXINE SODIUM [Concomitant]
     Active Substance: LEVOTHYROXINE SODIUM
     Indication: Product used for unknown indication
     Dosage: 75 MCG
  8. AMLODIPINE [Concomitant]
     Active Substance: AMLODIPINE BESYLATE
     Indication: Product used for unknown indication
  9. ATORVASTATIN [Concomitant]
     Active Substance: ATORVASTATIN
     Indication: Product used for unknown indication
  10. LOSARTAN [Concomitant]
     Active Substance: LOSARTAN
     Indication: Product used for unknown indication

REACTIONS (7)
  - Gastrointestinal infection [Unknown]
  - Renal impairment [Unknown]
  - Blood pressure increased [Unknown]
  - Oedema [Unknown]
  - Herpes zoster [Unknown]
  - Blood creatine increased [Unknown]
  - Muscle spasms [Unknown]

NARRATIVE: CASE EVENT DATE: 20220401
